FAERS Safety Report 6671815-4 (Version None)
Quarter: 2010Q2

REPORT INFORMATION
  Report Type: 
  Country: None (occurrence: None)
  Receive Date: 20100407
  Receipt Date: 20100318
  Transmission Date: 20101027
  Serious: Yes (Other)
  Sender: FDA-Public Use
  Company Number: US-ROCHE-695090

PATIENT
  Sex: Female
  Weight: 1.2 kg

DRUGS (8)
  1. RIBAVIRIN [Suspect]
     Indication: DRUG USE FOR UNKNOWN INDICATION
     Dates: start: 20080910, end: 20090601
  2. PEG-INTRON [Suspect]
     Indication: DRUG USE FOR UNKNOWN INDICATION
     Dates: start: 20080910, end: 20090527
  3. LOXOPROFEN [Concomitant]
  4. LANSOPRAZOLE [Concomitant]
  5. ETIZOLAM [Concomitant]
  6. DOMPERIDON [Concomitant]
  7. HIRUDOID [Concomitant]
     Dosage: HIRDOID SOFT
  8. RESTAMIN [Concomitant]

REACTIONS (3)
  - CEREBRAL VENTRICLE DILATATION [None]
  - MENINGOCELE [None]
  - SMALL FOR DATES BABY [None]
